FAERS Safety Report 26091797 (Version 1)
Quarter: 2025Q4

REPORT INFORMATION
  Report Type: Spontaneous
  Country: EU (occurrence: EU)
  Receive Date: 20251126
  Receipt Date: 20251126
  Transmission Date: 20260117
  Serious: Yes (Other)
  Sender: SAMSUNG BIOEPIS
  Company Number: EU-SAMSUNG BIOEPIS-SB-2025-38802

PATIENT
  Age: 58 Year
  Sex: Male

DRUGS (4)
  1. ADALIMUMAB [Suspect]
     Active Substance: ADALIMUMAB
     Indication: Psoriatic arthropathy
  2. ADALIMUMAB [Suspect]
     Active Substance: ADALIMUMAB
     Indication: Immunosuppression
  3. INFLIXIMAB [Suspect]
     Active Substance: INFLIXIMAB
     Indication: Psoriatic arthropathy
  4. METHOTREXATE [Concomitant]
     Active Substance: METHOTREXATE
     Indication: Immunosuppression

REACTIONS (9)
  - Pyoderma gangrenosum [Unknown]
  - Skin necrosis [Unknown]
  - Bacterial infection [Unknown]
  - Pain [Unknown]
  - Mobility decreased [Unknown]
  - Skin ulcer [Unknown]
  - Inflammation [Unknown]
  - Granuloma [Unknown]
  - Animal bite [Unknown]
